FAERS Safety Report 10059837 (Version 3)
Quarter: 2014Q2

REPORT INFORMATION
  Report Type: Spontaneous
  Country: US (occurrence: None)
  Receive Date: 20140402
  Receipt Date: 20140422
  Transmission Date: 20141212
  Serious: Yes (Hospitalization)
  Sender: FDA-Public Use
  Company Number: AUR-APL-2014-03927

PATIENT
  Age: 65 Year
  Sex: Male

DRUGS (9)
  1. LISINOPRIL [Suspect]
     Indication: PRODUCT USED FOR UNKNOWN INDICATION
     Route: 048
  2. LITHIUM [Suspect]
     Indication: BIPOLAR DISORDER
     Route: 048
  3. ASPIRIN (ACETYLSALICYLIC ACID) [Concomitant]
  4. WARFARIN (WARFARIN) [Concomitant]
  5. SPIRONOLACTONE (SPIRONOLACTONE) [Concomitant]
  6. SIMVASTATIN (SIMVASTATIN) [Concomitant]
  7. GABAPENTIN (GABAPENTIN) [Concomitant]
  8. SILDENAFIL (SILDENAFIL) [Concomitant]
  9. METOPROLOL (METOPROLOL) [Concomitant]

REACTIONS (23)
  - Weight decreased [None]
  - Dehydration [None]
  - Acute prerenal failure [None]
  - Confusional state [None]
  - Tremor [None]
  - Memory impairment [None]
  - Polydipsia [None]
  - Toxicity to various agents [None]
  - Aphasia [None]
  - Aphasia [None]
  - Fall [None]
  - Head injury [None]
  - Polyuria [None]
  - Slow speech [None]
  - International normalised ratio decreased [None]
  - Macrocytosis [None]
  - Sinus bradycardia [None]
  - Hypophagia [None]
  - Antipsychotic drug level above therapeutic [None]
  - Cerebrovascular accident [None]
  - Gait disturbance [None]
  - Cardiac ventricular thrombosis [None]
  - Dysgraphia [None]
